FAERS Safety Report 14030863 (Version 2)
Quarter: 2023Q1

REPORT INFORMATION
  Report Type: Spontaneous
  Country: US (occurrence: US)
  Receive Date: 20171002
  Receipt Date: 20230327
  Transmission Date: 20230418
  Serious: Yes (Other)
  Sender: FDA-Public Use
  Company Number: US-ACCORD-059320

PATIENT
  Age: 13 Year
  Sex: Male

DRUGS (9)
  1. MYCOPHENOLATE MOFETIL [Suspect]
     Active Substance: MYCOPHENOLATE MOFETIL
     Indication: Prophylaxis against graft versus host disease
     Dates: start: 2013
  2. TACROLIMUS [Suspect]
     Active Substance: TACROLIMUS
     Indication: Immunosuppressant drug therapy
  3. CYCLOSPORINE [Suspect]
     Active Substance: CYCLOSPORINE
     Indication: Prophylaxis against graft versus host disease
     Dates: start: 2013
  4. ALEMTUZUMAB [Suspect]
     Active Substance: ALEMTUZUMAB
     Indication: Bone marrow conditioning regimen
     Dates: start: 2013
  5. ETANERCEPT [Suspect]
     Active Substance: ETANERCEPT
     Indication: Graft versus host disease
     Dosage: T+243 THROUGH T+249 , T+328 THROUGH T+343
  6. FLUDARABINE [Suspect]
     Active Substance: FLUDARABINE PHOSPHATE
     Indication: Bone marrow conditioning regimen
     Dates: start: 2013
  7. INFLIXIMAB [Suspect]
     Active Substance: INFLIXIMAB
     Indication: Graft versus host disease
  8. MELPHALAN [Suspect]
     Active Substance: MELPHALAN
     Indication: Bone marrow conditioning regimen
     Dates: start: 2013
  9. METHYLPREDNISOLONE [Suspect]
     Active Substance: METHYLPREDNISOLONE
     Indication: Immunosuppressant drug therapy

REACTIONS (5)
  - Cystitis [Unknown]
  - BK virus infection [Unknown]
  - Cytomegalovirus infection reactivation [Unknown]
  - Mycobacterial infection [Recovering/Resolving]
  - Mass [Recovering/Resolving]

NARRATIVE: CASE EVENT DATE: 20140101
